FAERS Safety Report 9565765 (Version 2)
Quarter: 2014Q1

REPORT INFORMATION
  Report Type: Report from Study
  Country: FR (occurrence: FR)
  Receive Date: 20130930
  Receipt Date: 20140120
  Transmission Date: 20141002
  Serious: Yes (Other)
  Sender: FDA-Public Use
  Company Number: FR-JNJFOC-20130916652

PATIENT
  Age: 78 Year
  Sex: Male
  Weight: 88 kg

DRUGS (6)
  1. RIVAROXABAN [Suspect]
     Indication: CEREBROVASCULAR ACCIDENT PROPHYLAXIS
     Route: 065
     Dates: start: 20130806, end: 20130828
  2. DOLIPRANE [Concomitant]
     Route: 065
     Dates: start: 20130110
  3. TAREG [Concomitant]
     Route: 065
     Dates: start: 20121010
  4. BISOPROLOL [Concomitant]
     Route: 065
     Dates: start: 20130110
  5. PHENOXYMETHYLPENICILLIN [Concomitant]
     Route: 065
     Dates: start: 20130110
  6. TEMESTA [Concomitant]
     Route: 065
     Dates: start: 20130110

REACTIONS (1)
  - Oedema [Recovered/Resolved]
